FAERS Safety Report 4592080-8 (Version None)
Quarter: 2005Q1

REPORT INFORMATION
  Report Type: 
  Country: None (occurrence: None)
  Receive Date: 20050125
  Receipt Date: 20040825
  Transmission Date: 20050727
  Serious: No
  Sender: FDA-Public Use
  Company Number: USA040876594

PATIENT
  Age: 78 Year
  Sex: Female

DRUGS (4)
  1. FORTEO [Suspect]
     Dates: start: 20040401
  2. COUMADIN [Concomitant]
  3. AVAPRO [Concomitant]
  4. TOPROL-XL [Concomitant]

REACTIONS (4)
  - FALL [None]
  - HAND FRACTURE [None]
  - LACERATION [None]
  - SWELLING [None]
